FAERS Safety Report 17492941 (Version 1)
Quarter: 2020Q1

REPORT INFORMATION
  Report Type: Report from Study
  Country: KR (occurrence: KR)
  Receive Date: 20200303
  Receipt Date: 20200303
  Transmission Date: 20200409
  Serious: Yes (Hospitalization)
  Sender: FDA-Public Use
  Company Number: KR-JNJFOC-20200238986

PATIENT
  Sex: Female
  Weight: 52 kg

DRUGS (15)
  1. DILATREND [Concomitant]
     Active Substance: CARVEDILOL
     Dosage: 3.125 MG
     Route: 048
     Dates: start: 20200205, end: 20200212
  2. DILATREND [Concomitant]
     Active Substance: CARVEDILOL
     Dosage: 6.25 UNK
     Route: 048
     Dates: start: 20200213
  3. LIPITOR [Concomitant]
     Active Substance: ATORVASTATIN CALCIUM
     Dosage: 40 MG
     Route: 048
     Dates: start: 20200213
  4. CAVIT [Concomitant]
     Dosage: 500 MG
     Route: 048
     Dates: start: 20200204, end: 20200218
  5. ATACAND [Concomitant]
     Active Substance: CANDESARTAN CILEXETIL
     Dosage: 32 MG
     Route: 048
     Dates: start: 20200206, end: 20200207
  6. ATACAND [Concomitant]
     Active Substance: CANDESARTAN CILEXETIL
     Dosage: 8 UNK
     Route: 048
     Dates: start: 20200209
  7. DIGOXIN. [Concomitant]
     Active Substance: DIGOXIN
     Dosage: 0.125 MG
     Route: 048
     Dates: start: 20200204, end: 20200212
  8. XARELTO [Suspect]
     Active Substance: RIVAROXABAN
     Indication: CEREBROVASCULAR ACCIDENT PROPHYLAXIS
     Dosage: 15 MG, QD
     Route: 048
     Dates: start: 20200204, end: 20200217
  9. XARELTO [Suspect]
     Active Substance: RIVAROXABAN
     Indication: THROMBOSIS PROPHYLAXIS
  10. FURIX [Concomitant]
     Dosage: 40 MG
     Dates: start: 20200203, end: 20200207
  11. BANAN [Concomitant]
     Active Substance: CEFPODOXIME PROXETIL
     Dosage: 200 MG
     Route: 048
     Dates: start: 20200214, end: 20200218
  12. ATACAND [Concomitant]
     Active Substance: CANDESARTAN CILEXETIL
     Dosage: 16 MG
     Route: 048
     Dates: start: 20200203, end: 20200204
  13. FURIX [Concomitant]
     Dosage: 20 MG
     Route: 048
     Dates: start: 20200208
  14. XARELTO [Suspect]
     Active Substance: RIVAROXABAN
     Indication: ATRIAL FIBRILLATION
  15. ALDACTONE [Concomitant]
     Active Substance: SPIRONOLACTONE
     Dosage: 25 MG
     Dates: start: 20200203

REACTIONS (1)
  - Gastric ulcer [Recovered/Resolved]

NARRATIVE: CASE EVENT DATE: 20200217
